FAERS Safety Report 25459721 (Version 4)
Quarter: 2025Q3

REPORT INFORMATION
  Report Type: Report from Study
  Country: US (occurrence: US)
  Receive Date: 20250620
  Receipt Date: 20250711
  Transmission Date: 20251020
  Serious: Yes (Other)
  Sender: ACADIA PHARMACEUTICALS
  Company Number: US-ACADIA PHARMACEUTICALS INC.-ACA-2025-PIM-007267

PATIENT
  Sex: Male

DRUGS (23)
  1. NUPLAZID [Suspect]
     Active Substance: PIMAVANSERIN TARTRATE
     Indication: Parkinson^s disease psychosis
     Dosage: 34 MILLIGRAM, QD
     Route: 048
     Dates: start: 202302
  2. METHOCARBAMOL [Concomitant]
     Active Substance: METHOCARBAMOL
  3. MAGNESIUM [Concomitant]
     Active Substance: MAGNESIUM
  4. BUPROPION [Concomitant]
     Active Substance: BUPROPION
  5. SINEMET [Concomitant]
     Active Substance: CARBIDOPA\LEVODOPA
  6. PLANTAGO AFRA SEED [Concomitant]
     Active Substance: PLANTAGO AFRA SEED
  7. TAMSULOSIN [Concomitant]
     Active Substance: TAMSULOSIN
  8. TYLENOL [Concomitant]
     Active Substance: ACETAMINOPHEN
  9. CANNABIDIOL\HERBALS [Concomitant]
     Active Substance: CANNABIDIOL\HERBALS
  10. TADALAFIL [Concomitant]
     Active Substance: TADALAFIL
  11. MIRALAX [Concomitant]
     Active Substance: POLYETHYLENE GLYCOL 3350
  12. VITAMIN B COMPLEX [Concomitant]
     Active Substance: CYANOCOBALAMIN\DEXPANTHENOL\NIACINAMIDE\PYRIDOXINE HYDROCHLORIDE\RIBOFLAVIN 5^-PHOSPHATE SODIUM\THIA
  13. OMEPRAZOLE [Concomitant]
     Active Substance: OMEPRAZOLE
  14. COLACE [Concomitant]
     Active Substance: DOCUSATE SODIUM
  15. DONEPEZIL [Concomitant]
     Active Substance: DONEPEZIL
  16. LISINOPRIL [Concomitant]
     Active Substance: LISINOPRIL
  17. CALCIUM [Concomitant]
     Active Substance: CALCIUM
  18. FISH OIL [Concomitant]
     Active Substance: FISH OIL
  19. SERTRALINE [Concomitant]
     Active Substance: SERTRALINE HYDROCHLORIDE
  20. NORVASC [Concomitant]
     Active Substance: AMLODIPINE BESYLATE
  21. VITAMINS [Concomitant]
     Active Substance: VITAMINS
  22. PROBIOTICS NOS [Concomitant]
     Active Substance: PROBIOTICS NOS
  23. CURCUMIN [Concomitant]
     Active Substance: CURCUMIN

REACTIONS (1)
  - Hallucination [Not Recovered/Not Resolved]
